FAERS Safety Report 7814215-3 (Version None)
Quarter: 2011Q4

REPORT INFORMATION
  Report Type: 
  Country: None (occurrence: None)
  Receive Date: 20111014
  Receipt Date: 20111006
  Transmission Date: 20120403
  Serious: Yes (Other)
  Sender: FDA-Public Use
  Company Number: US-MYLANLABS-2011S1020940

PATIENT
  Age: 18 Year
  Sex: Female

DRUGS (3)
  1. CLARAVIS [Suspect]
  2. AMNESTEEM [Suspect]
     Dates: start: 20110614
  3. AMNESTEEM [Suspect]
     Dates: start: 20110614

REACTIONS (1)
  - MATERNAL EXPOSURE DURING PREGNANCY [None]
